FAERS Safety Report 23923586 (Version 1)
Quarter: 2024Q2

REPORT INFORMATION
  Report Type: Spontaneous
  Country: CN (occurrence: CN)
  Receive Date: 20240531
  Receipt Date: 20240531
  Transmission Date: 20240716
  Serious: Yes (Hospitalization)
  Sender: FDA-Public Use
  Company Number: CN-Bausch and Lomb-2024BNL027430

PATIENT
  Age: 51 Year
  Sex: Female
  Weight: 60 kg

DRUGS (2)
  1. OFLOXACIN [Suspect]
     Active Substance: OFLOXACIN
     Indication: Conjunctival hyperaemia
     Dosage: 2 DROPS EACH TIME, 3 TIMES A DAY
     Route: 065
     Dates: start: 20240507, end: 20240508
  2. METRONIDAZOLE [Suspect]
     Active Substance: METRONIDAZOLE
     Indication: Vaginal infection
     Dosage: 1 TABLET EACH TIME, 1 TIME A DAY
     Route: 067
     Dates: start: 20240507, end: 20240508

REACTIONS (3)
  - Rash erythematous [Recovered/Resolved]
  - Urticaria [Recovered/Resolved]
  - Pruritus [Recovered/Resolved]

NARRATIVE: CASE EVENT DATE: 20240507
